FAERS Safety Report 9438464 (Version 3)
Quarter: 2014Q3

REPORT INFORMATION
  Report Type: Spontaneous
  Country: US (occurrence: US)
  Receive Date: 20130802
  Receipt Date: 20140728
  Transmission Date: 20150326
  Serious: Yes (Hospitalization, Disabling, Other)
  Sender: FDA-Public Use
  Company Number: US-009507513-1307USA017122

PATIENT
  Sex: Female
  Weight: 61.22 kg

DRUGS (3)
  1. NUVARING [Suspect]
     Active Substance: ETHINYL ESTRADIOL\ETONOGESTREL
     Dosage: UNK
     Route: 067
     Dates: start: 2009, end: 201001
  2. NUVARING [Suspect]
     Active Substance: ETHINYL ESTRADIOL\ETONOGESTREL
     Dosage: UNK
     Route: 067
     Dates: start: 200802, end: 200902
  3. NUVARING [Suspect]
     Active Substance: ETHINYL ESTRADIOL\ETONOGESTREL
     Indication: CONTRACEPTION
     Dosage: UNK
     Route: 067
     Dates: start: 200701, end: 200801

REACTIONS (27)
  - Surgery [Unknown]
  - Myofascial pain syndrome [Unknown]
  - Activities of daily living impaired [Unknown]
  - Hot flush [Unknown]
  - Pain [Not Recovered/Not Resolved]
  - Pulmonary embolism [Unknown]
  - Stress [Unknown]
  - Depression [Unknown]
  - Vomiting [Unknown]
  - Ankylosing spondylitis [Unknown]
  - Fatigue [Unknown]
  - Raynaud^s phenomenon [Unknown]
  - Night sweats [Unknown]
  - Neuritis [Unknown]
  - Pulmonary mass [Unknown]
  - Myalgia [Unknown]
  - Coagulopathy [Unknown]
  - Metrorrhagia [Unknown]
  - Vaginal discharge [Unknown]
  - Female sterilisation [Unknown]
  - Adnexa uteri pain [Unknown]
  - Fibromyalgia [Unknown]
  - Neoplasm malignant [Unknown]
  - Breast cancer [Unknown]
  - Inappropriate schedule of drug administration [Unknown]
  - Immunodeficiency [Unknown]
  - Nausea [Unknown]

NARRATIVE: CASE EVENT DATE: 200701
